FAERS Safety Report 14891833 (Version 1)
Quarter: 2018Q2

REPORT INFORMATION
  Report Type: Spontaneous
  Country: FR (occurrence: FR)
  Receive Date: 20180514
  Receipt Date: 20180514
  Transmission Date: 20180711
  Serious: Yes (Life-Threatening)
  Sender: FDA-Public Use
  Company Number: PHHY2018FR006303

PATIENT
  Age: 51 Year
  Sex: Male

DRUGS (2)
  1. RIFADINE [Interacting]
     Active Substance: RIFAMPIN
     Indication: PRODUCT USED FOR UNKNOWN INDICATION
     Dosage: 1 DF (300 MG), UNK
     Route: 048
     Dates: start: 20171124, end: 20180215
  2. NEORAL [Suspect]
     Active Substance: CYCLOSPORINE
     Indication: LIVER TRANSPLANT
     Dosage: 150 MG, UNK
     Route: 048
     Dates: end: 20180213

REACTIONS (3)
  - Drug interaction [Recovered/Resolved]
  - Liver transplant rejection [Not Recovered/Not Resolved]
  - Underdose [Recovered/Resolved]

NARRATIVE: CASE EVENT DATE: 201802
